FAERS Safety Report 4626476-2 (Version None)
Quarter: 2005Q1

REPORT INFORMATION
  Report Type: 
  Country: None (occurrence: None)
  Receive Date: 20050330
  Receipt Date: 20050316
  Transmission Date: 20050727
  Serious: Yes (Death, Congenital Anomaly, Other)
  Sender: FDA-Public Use
  Company Number: SU-2005-003287

PATIENT
  Sex: 0

DRUGS (3)
  1. BENICAR [Suspect]
     Indication: HYPERTENSION
     Dosage: MG PO
     Route: 048
     Dates: end: 20041101
  2. DYNACIRC [Concomitant]
  3. ZOCOR [Concomitant]

REACTIONS (6)
  - AMNIOTIC FLUID VOLUME DECREASED [None]
  - DRUG EXPOSURE DURING PREGNANCY [None]
  - FOETAL DISORDER [None]
  - POLYHYDRAMNIOS [None]
  - RENAL FAILURE NEONATAL [None]
  - RENAL HYPERTROPHY [None]
